FAERS Safety Report 9819014 (Version 4)
Quarter: 2014Q4

REPORT INFORMATION
  Report Type: Spontaneous
  Country: JP (occurrence: None)
  Receive Date: 20140113
  Receipt Date: 20141003
  Transmission Date: 20150529
  Serious: Yes (Hospitalization)
  Sender: FDA-Public Use
  Company Number: JP-014183

PATIENT
  Age: 62 Year
  Sex: Male
  Weight: 69 kg

DRUGS (14)
  1. AMLODIPINE [Concomitant]
     Active Substance: AMLODIPINE BESYLATE
  2. BICALUTAMIDE. [Concomitant]
     Active Substance: BICALUTAMIDE
  3. REBAMIPIDE [Concomitant]
     Active Substance: REBAMIPIDE
  4. SHAKUYAKUKANZOTO [Concomitant]
     Active Substance: HERBALS
  5. MAGMITT [Concomitant]
     Active Substance: MAGNESIUM OXIDE
  6. CASODEX [Concomitant]
     Active Substance: BICALUTAMIDE
  7. CELESTAMINE [Concomitant]
     Active Substance: BETAMETHASONE\DEXCHLORPHENIRAMINE MALEATE
  8. THYRADIN [Concomitant]
     Active Substance: LEVOTHYROXINE
  9. SODIUM CHLORIDE. [Concomitant]
     Active Substance: SODIUM CHLORIDE
  10. DEGARELIX [Suspect]
     Active Substance: DEGARELIX
     Indication: PROSTATE CANCER
     Route: 058
     Dates: start: 20130823, end: 20130823
  11. TOYOFAROL [Suspect]
     Active Substance: ALFACALCIDOL
     Indication: HYPOCALCAEMIA
     Dosage: (1 UG QD, REGIMEN #1 (UID). ORAL)?
     Route: 048
     Dates: start: 20130910, end: 20130912
  12. FEBURIC [Concomitant]
     Active Substance: FEBUXOSTAT
  13. SOLITA-T1 [Concomitant]
  14. LOXOPROFEN [Concomitant]
     Active Substance: LOXOPROFEN

REACTIONS (7)
  - Blood albumin abnormal [None]
  - Muscular weakness [None]
  - Muscle spasms [None]
  - Urticaria [None]
  - Hypoaesthesia [None]
  - Hypocalcaemia [None]
  - Condition aggravated [None]

NARRATIVE: CASE EVENT DATE: 20130904
